FAERS Safety Report 7526047-4 (Version None)
Quarter: 2011Q2

REPORT INFORMATION
  Report Type: 
  Country: None (occurrence: None)
  Receive Date: 20110603
  Receipt Date: 20110603
  Transmission Date: 20111010
  Serious: Yes (Other)
  Sender: FDA-Public Use
  Company Number: None

PATIENT
  Age: 6 Year
  Sex: Male
  Weight: 25.9 kg

DRUGS (1)
  1. ZYRTEC [Suspect]
     Indication: SEASONAL ALLERGY
     Dosage: 10 MG TABLET 1 PER DAY ORAL
     Route: 048
     Dates: start: 20070101, end: 20100101

REACTIONS (7)
  - HYPERSENSITIVITY [None]
  - AGGRESSION [None]
  - DEPRESSION [None]
  - SENSORY LOSS [None]
  - SELF INJURIOUS BEHAVIOUR [None]
  - ANGER [None]
  - ATTENTION DEFICIT/HYPERACTIVITY DISORDER [None]
